FAERS Safety Report 7406178-X (Version None)
Quarter: 2011Q2

REPORT INFORMATION
  Report Type: 
  Country: None (occurrence: None)
  Receive Date: 20110411
  Receipt Date: 20101027
  Transmission Date: 20111010
  Serious: Yes (Hospitalization, Other)
  Sender: FDA-Public Use
  Company Number: US-BAYER-201021195NA

PATIENT
  Age: 36 Year
  Sex: Female
  Weight: 77.098 kg

DRUGS (5)
  1. ASCORBIC ACID [Concomitant]
     Indication: VITAMIN SUPPLEMENTATION
     Dosage: UNK UNK, QD
     Dates: start: 20040101
  2. MULTI-VITAMINS [Concomitant]
     Indication: VITAMIN SUPPLEMENTATION
     Dosage: UNK UNK, QD
     Dates: start: 20040101
  3. YASMIN [Suspect]
     Indication: CONTRACEPTION
     Dosage: UNK
     Dates: start: 20070722, end: 20070730
  4. YAZ [Suspect]
     Indication: CONTRACEPTION
     Dosage: UNK UNK, QD
     Route: 048
     Dates: start: 20070722, end: 20070730
  5. PSYCHOTROPIC MEDICATIONS [Concomitant]

REACTIONS (5)
  - SUICIDAL IDEATION [None]
  - DEPRESSION [None]
  - HOMICIDAL IDEATION [None]
  - ANXIETY [None]
  - PSYCHOTIC DISORDER [None]
